FAERS Safety Report 24141753 (Version 9)
Quarter: 2024Q4

REPORT INFORMATION
  Report Type: Report from Study
  Country: CA (occurrence: CA)
  Receive Date: 20240726
  Receipt Date: 20241009
  Transmission Date: 20250115
  Serious: Yes (Hospitalization, Other)
  Sender: CSL BEHRING
  Company Number: CA-BEH-2024175387

PATIENT
  Age: 62 Year
  Sex: Male
  Weight: 89.35 kg

DRUGS (16)
  1. HAEMATE P [Suspect]
     Active Substance: ANTIHEMOPHILIC FACTOR HUMAN
     Indication: Von Willebrand^s disease
     Dosage: 2000 IU, QD
     Route: 042
     Dates: start: 20240706, end: 20240708
  2. HAEMATE P [Suspect]
     Active Substance: ANTIHEMOPHILIC FACTOR HUMAN
     Dosage: 2000 IU, QD
     Route: 042
  3. HAEMATE P [Suspect]
     Active Substance: ANTIHEMOPHILIC FACTOR HUMAN
     Dosage: UNK UNK, QD
     Route: 042
     Dates: start: 20240717
  4. HAEMATE P [Suspect]
     Active Substance: ANTIHEMOPHILIC FACTOR HUMAN
     Dosage: UNK
     Route: 042
  5. HAEMATE P [Suspect]
     Active Substance: ANTIHEMOPHILIC FACTOR HUMAN
     Dosage: 1000 MG, BID
     Route: 042
     Dates: start: 20240706
  6. HAEMATE P [Suspect]
     Active Substance: ANTIHEMOPHILIC FACTOR HUMAN
     Dosage: 2000 IU, QD
     Route: 042
     Dates: start: 20240706
  7. HAEMATE P [Suspect]
     Active Substance: ANTIHEMOPHILIC FACTOR HUMAN
     Dosage: 1000 IU, BID
     Route: 042
     Dates: start: 20240706
  8. HAEMATE P [Suspect]
     Active Substance: ANTIHEMOPHILIC FACTOR HUMAN
     Dosage: 2000 IU, QD
     Route: 042
     Dates: start: 20240830
  9. HAEMATE P [Suspect]
     Active Substance: ANTIHEMOPHILIC FACTOR HUMAN
     Dosage: 2000 IU, QD
     Route: 042
     Dates: start: 20240706, end: 20240708
  10. BISOPROLOL [Concomitant]
     Active Substance: BISOPROLOL\BISOPROLOL FUMARATE
  11. ASIC [Concomitant]
  12. TAMSULOSIN [Concomitant]
     Active Substance: TAMSULOSIN
  13. LOSARTAN [Concomitant]
     Active Substance: LOSARTAN
  14. CLOPIDOGREL [Concomitant]
     Active Substance: CLOPIDOGREL BISULFATE
  15. AMLODIPINE [Concomitant]
     Active Substance: AMLODIPINE BESYLATE
  16. FERROUS FUMARATE [Concomitant]
     Active Substance: FERROUS FUMARATE

REACTIONS (17)
  - Coronary artery disease [Recovered/Resolved]
  - Arterial stent insertion [Recovered/Resolved]
  - Flank pain [Unknown]
  - Contusion [Recovering/Resolving]
  - Fear of injection [Unknown]
  - Platelet count decreased [Unknown]
  - Discomfort [Unknown]
  - Poor venous access [Recovered/Resolved]
  - Poor venous access [Unknown]
  - Poor venous access [Unknown]
  - Fluid intake reduced [Unknown]
  - Injection site bruising [Unknown]
  - Poor venous access [Unknown]
  - Poor venous access [Unknown]
  - Poor venous access [Unknown]
  - Poor venous access [Unknown]
  - Therapy interrupted [Unknown]

NARRATIVE: CASE EVENT DATE: 20240712
